FAERS Safety Report 4658477-2 (Version None)
Quarter: 2005Q2

REPORT INFORMATION
  Report Type: 
  Country: None (occurrence: None)
  Receive Date: 20050511
  Receipt Date: 20050428
  Transmission Date: 20051028
  Serious: Yes (Hospitalization)
  Sender: FDA-Public Use
  Company Number: FR-GLAXOSMITHKLINE-B0379844A

PATIENT
  Age: 73 Year
  Sex: Male

DRUGS (6)
  1. ONDANSETRON [Suspect]
     Route: 048
     Dates: start: 20050219, end: 20050224
  2. SOLUPRED [Suspect]
     Route: 048
     Dates: start: 20050219, end: 20050224
  3. SKENAN [Suspect]
     Route: 048
     Dates: start: 20050221
  4. EFFERALGAN CODEINE [Suspect]
     Route: 048
     Dates: end: 20050222
  5. GEMZAR [Suspect]
     Indication: LUNG ADENOCARCINOMA
     Route: 042
     Dates: start: 20050218, end: 20050218
  6. CARBOPLATINE [Suspect]
     Indication: LUNG ADENOCARCINOMA
     Route: 042
     Dates: start: 20050218, end: 20050218

REACTIONS (2)
  - ABDOMINAL PAIN UPPER [None]
  - SUBILEUS [None]
